FAERS Safety Report 17491140 (Version 2)
Quarter: 2020Q1

REPORT INFORMATION
  Report Type: Report from Study
  Country: ES (occurrence: ES)
  Receive Date: 20200303
  Receipt Date: 20200312
  Transmission Date: 20200409
  Serious: Yes (Death, Hospitalization, Other)
  Sender: FDA-Public Use
  Company Number: ES-SEATTLE GENETICS-2020SGN01059

PATIENT
  Age: 81 Year
  Sex: Male
  Weight: 63.5 kg

DRUGS (6)
  1. PREDNISONE. [Suspect]
     Active Substance: PREDNISONE
     Indication: HODGKIN^S DISEASE
     Dosage: 250 MILLIGRAM
     Route: 065
     Dates: start: 20190803
  2. BRENTUXIMAB VEDOTIN [Suspect]
     Active Substance: BRENTUXIMAB VEDOTIN
     Indication: HODGKIN^S DISEASE
     Dosage: 76.2 MILLIGRAM
     Route: 065
     Dates: start: 20190803
  3. MITOXANTRONE HYDROCHLORIDE. [Suspect]
     Active Substance: MITOXANTRONE HYDROCHLORIDE
     Indication: HODGKIN^S DISEASE
     Dosage: 9.6 MILLIGRAM
     Route: 065
     Dates: start: 20190819
  4. CYCLOPHOSPHAMIDE. [Suspect]
     Active Substance: CYCLOPHOSPHAMIDE
     Indication: HODGKIN^S DISEASE
     Dosage: 815.0 MILLIGRAM
     Route: 065
     Dates: start: 20190803
  5. PROCARBAZINE [Suspect]
     Active Substance: PROCARBAZINE
     Indication: HODGKIN^S DISEASE
     Dosage: 800 MILLIGRAM
     Route: 065
     Dates: start: 20190803
  6. ETOPOSIDE. [Suspect]
     Active Substance: ETOPOSIDE
     Indication: HODGKIN^S DISEASE
     Dosage: 100 MILLIGRAM
     Route: 065
     Dates: start: 20190819

REACTIONS (2)
  - Respiratory tract infection [Fatal]
  - Pyrexia [Recovered/Resolved]

NARRATIVE: CASE EVENT DATE: 20191230
